FAERS Safety Report 4664348-8 (Version None)
Quarter: 2005Q2

REPORT INFORMATION
  Report Type: 
  Country: None (occurrence: None)
  Receive Date: 20050518
  Receipt Date: 20050504
  Transmission Date: 20051028
  Serious: Yes (Other)
  Sender: FDA-Public Use
  Company Number: 2005GB00891

PATIENT
  Age: 826 Month
  Sex: Female

DRUGS (2)
  1. ARIMIDEX [Suspect]
     Indication: BREAST CANCER
     Route: 048
     Dates: start: 20000101
  2. RADIOTHERAPY [Concomitant]

REACTIONS (4)
  - BREAST DISCOMFORT [None]
  - BREAST NECROSIS [None]
  - SKIN HYPERTROPHY [None]
  - THERAPY NON-RESPONDER [None]
